FAERS Safety Report 7296847-7 (Version None)
Quarter: 2011Q1

REPORT INFORMATION
  Report Type: 
  Country: None (occurrence: None)
  Receive Date: 20110204
  Receipt Date: 20110120
  Transmission Date: 20110831
  Serious: Yes (Hospitalization)
  Sender: FDA-Public Use
  Company Number: 2010002602

PATIENT
  Age: 66 Year
  Sex: Male

DRUGS (12)
  1. COENZYME Q10 [Concomitant]
  2. ERLOTINIB HYDROCHLORIDE [Suspect]
     Indication: MYELODYSPLASTIC SYNDROME
     Dosage: (150 MG, QD), ORAL (100 MG, QD), ORAL
     Route: 048
     Dates: start: 20100630
  3. ERLOTINIB HYDROCHLORIDE [Suspect]
     Indication: MYELODYSPLASTIC SYNDROME
     Dosage: (150 MG, QD), ORAL (100 MG, QD), ORAL
     Route: 048
     Dates: start: 20100330, end: 20100621
  4. BENADRYL [Suspect]
  5. ACETAMINOPHEN [Concomitant]
  6. RESTORIL [Concomitant]
  7. IMODIUM [Suspect]
  8. METOPROLOL (METOPROLOL [Concomitant]
  9. NITROGLYCERIN [Suspect]
  10. MAGNESIUM SUPPLEMENT (MAGNESIUM) [Concomitant]
  11. COMPAZINE [Concomitant]
  12. VALSARTAN [Concomitant]

REACTIONS (14)
  - CHONDROCALCINOSIS [None]
  - PLATELET COUNT DECREASED [None]
  - PULMONARY EMBOLISM [None]
  - ANAEMIA [None]
  - JOINT EFFUSION [None]
  - CHEST PAIN [None]
  - WHITE BLOOD CELL COUNT DECREASED [None]
  - ARTERIOSCLEROSIS [None]
  - DYSPNOEA [None]
  - ARTHRALGIA [None]
  - BLOOD BILIRUBIN INCREASED [None]
  - BLOOD UREA INCREASED [None]
  - LIMB INJURY [None]
  - CELLULITIS [None]
